FAERS Safety Report 6062555-3 (Version None)
Quarter: 2009Q1

REPORT INFORMATION
  Report Type: 
  Country: None (occurrence: None)
  Receive Date: 20090202
  Receipt Date: 20090202
  Transmission Date: 20090719
  Serious: Yes (Other)
  Sender: FDA-Public Use
  Company Number: None

PATIENT
  Age: 5 Year
  Sex: Male
  Weight: 18.5975 kg

DRUGS (5)
  1. AZITHROMYCIN [Suspect]
     Indication: EAR INFECTION
     Dosage: 1 TSP FIRST DAY PO 1/2 TEASPOON NEXT FOUR DAYS PO
     Route: 048
     Dates: start: 20090201, end: 20090206
  2. AZITHROMYCIN [Suspect]
     Indication: SINUSITIS
     Dosage: 1 TSP FIRST DAY PO 1/2 TEASPOON NEXT FOUR DAYS PO
     Route: 048
     Dates: start: 20090201, end: 20090206
  3. CETIRIZINE HCL [Concomitant]
  4. SINGULAIR [Concomitant]
  5. FLOVENT [Concomitant]

REACTIONS (1)
  - PEAK EXPIRATORY FLOW RATE DECREASED [None]
